FAERS Safety Report 7760255-2 (Version None)
Quarter: 2011Q3

REPORT INFORMATION
  Report Type: 
  Country: None (occurrence: None)
  Receive Date: 20110919
  Receipt Date: 20110908
  Transmission Date: 20111222
  Serious: Yes (Death)
  Sender: FDA-Public Use
  Company Number: AU-GLAXOSMITHKLINE-B0745458A

PATIENT
  Sex: Male
  Weight: 75 kg

DRUGS (1)
  1. ZANAMIVIR [Suspect]
     Indication: H1N1 INFLUENZA
     Dosage: 600MG TWICE PER DAY
     Route: 042

REACTIONS (1)
  - PNEUMONIA VIRAL [None]
